FAERS Safety Report 7487734-X (Version None)
Quarter: 2011Q2

REPORT INFORMATION
  Report Type: 
  Country: None (occurrence: None)
  Receive Date: 20110518
  Receipt Date: 20110509
  Transmission Date: 20111010
  Serious: Yes (Hospitalization)
  Sender: FDA-Public Use
  Company Number: PHFR2011GB02968

PATIENT
  Sex: Male

DRUGS (1)
  1. CLOZARIL [Suspect]
     Indication: SCHIZOPHRENIA
     Route: 048
     Dates: start: 20100324, end: 20110509

REACTIONS (4)
  - CHEST PAIN [None]
  - TROPONIN T INCREASED [None]
  - MYOCARDITIS [None]
  - HEART RATE INCREASED [None]
